FAERS Safety Report 7242941-6 (Version None)
Quarter: 2011Q1

REPORT INFORMATION
  Report Type: 
  Country: None (occurrence: None)
  Receive Date: 20110125
  Receipt Date: 20110119
  Transmission Date: 20110831
  Serious: Yes (Death, Hospitalization)
  Sender: FDA-Public Use
  Company Number: US-US-EMD SERONO, INC.-233385J08USA

PATIENT
  Sex: Female
  Weight: 66 kg

DRUGS (8)
  1. REBIF [Suspect]
     Route: 058
     Dates: start: 20091006, end: 20100801
  2. BONIVA [Concomitant]
     Indication: OSTEOPENIA
  3. BACTRIM DS [Concomitant]
     Indication: CYSTITIS
  4. DITROPAN [Concomitant]
     Indication: INCONTINENCE
  5. REBIF [Suspect]
     Dates: start: 20080101, end: 20080229
  6. REBIF [Suspect]
     Route: 058
     Dates: start: 20071001, end: 20080101
  7. ZETIA [Concomitant]
     Indication: BLOOD CHOLESTEROL INCREASED
  8. AMITRIPTYLINE [Concomitant]
     Indication: MUSCLE SPASTICITY

REACTIONS (1)
  - BREAST CANCER [None]
